FAERS Safety Report 7954274-0 (Version None)
Quarter: 2011Q4

REPORT INFORMATION
  Report Type: 
  Country: None (occurrence: None)
  Receive Date: 20111202
  Receipt Date: 20111123
  Transmission Date: 20120403
  Serious: Yes (Other)
  Sender: FDA-Public Use
  Company Number: JP-NOVOPROD-340183

PATIENT

DRUGS (1)
  1. NOVOSEVEN [Suspect]
     Indication: ACQUIRED HAEMOPHILIA
     Dosage: 8 MG, QD (1MG X 8 TIMES, EVERY 3 HOURS)
     Route: 042
     Dates: start: 20111117, end: 20111118

REACTIONS (2)
  - BONE PAIN [None]
  - CEREBRAL INFARCTION [None]
